FAERS Safety Report 8482815-6 (Version None)
Quarter: 2012Q3

REPORT INFORMATION
  Report Type: 
  Country: None (occurrence: None)
  Receive Date: 20120702
  Receipt Date: 20120619
  Transmission Date: 20120928
  Serious: Yes (Hospitalization, Other)
  Sender: FDA-Public Use
  Company Number: US-VIROPHARMA INCORPORATED-20120509CINRY2954

PATIENT
  Sex: Male
  Weight: 104.87 kg

DRUGS (6)
  1. COUMADIN [Concomitant]
     Indication: ANTICOAGULANT THERAPY
     Route: 065
     Dates: start: 20120101
  2. CINRYZE [Suspect]
     Dates: start: 20120101
  3. CINRYZE [Suspect]
     Indication: HEREDITARY ANGIOEDEMA
     Dates: start: 20111001, end: 20120101
  4. BERINERT [Suspect]
     Indication: HEREDITARY ANGIOEDEMA
     Dosage: UNKNOWN
     Route: 065
  5. UNSPECIFED INSULIN [Concomitant]
     Indication: TYPE 1 DIABETES MELLITUS
     Dosage: DOSAGE DEPENDENT ON BLOOD SUGAR LEVELS
     Route: 058
  6. LOVENOX [Concomitant]
     Indication: ANTICOAGULANT THERAPY
     Route: 065
     Dates: start: 20120101

REACTIONS (8)
  - INAPPROPRIATE SCHEDULE OF DRUG ADMINISTRATION [None]
  - STAPHYLOCOCCAL INFECTION [None]
  - JUGULAR VEIN THROMBOSIS [None]
  - HEREDITARY ANGIOEDEMA [None]
  - CATHETER SITE INFECTION [None]
  - HEADACHE [None]
  - DEVICE RELATED INFECTION [None]
  - EMBOLISM [None]
